FAERS Safety Report 5307825-9 (Version None)
Quarter: 2007Q1

REPORT INFORMATION
  Report Type: 
  Country: None (occurrence: None)
  Receive Date: 20070201
  Receipt Date: 20061209
  Transmission Date: 20070707
  Serious: No
  Sender: FDA-Public Use
  Company Number: 2006PV026643

PATIENT
  Age: 57 Year
  Sex: Male
  Weight: 131.5431 kg

DRUGS (6)
  1. BYETTA [Suspect]
     Indication: DIABETES MELLITUS NON-INSULIN-DEPENDENT
     Dosage: 5 MCG BID SC
     Route: 058
     Dates: start: 20061018
  2. METFORMIN HCL [Concomitant]
  3. AVANDIA [Concomitant]
  4. PRANDIN [Concomitant]
  5. GLIPIZIDE [Concomitant]
  6. ACTOS [Concomitant]

REACTIONS (4)
  - DECREASED APPETITE [None]
  - DYSPEPSIA [None]
  - NAUSEA [None]
  - WEIGHT INCREASED [None]
